FAERS Safety Report 6283289-6 (Version None)
Quarter: 2009Q3

REPORT INFORMATION
  Report Type: 
  Country: None (occurrence: None)
  Receive Date: 20090724
  Receipt Date: 20090722
  Transmission Date: 20100115
  Serious: Yes (Death, Other)
  Sender: FDA-Public Use
  Company Number: JP-JNJFOC-20090705076

PATIENT
  Age: 70 Year
  Sex: Male

DRUGS (2)
  1. DUROTEP MT PATCH [Suspect]
     Dosage: 200UG/HR=100 UG/HR, 2 PATCHES
     Route: 062
  2. DUROTEP MT PATCH [Suspect]
     Indication: CANCER PAIN
     Route: 062

REACTIONS (4)
  - ALTERED STATE OF CONSCIOUSNESS [None]
  - HEPATIC NEOPLASM MALIGNANT [None]
  - RESPIRATORY DEPRESSION [None]
  - URINE OUTPUT DECREASED [None]
